FAERS Safety Report 5926428-6 (Version None)
Quarter: 2008Q4

REPORT INFORMATION
  Report Type: 
  Country: None (occurrence: None)
  Receive Date: 20081022
  Receipt Date: 20081015
  Transmission Date: 20090506
  Serious: Yes (Other)
  Sender: FDA-Public Use
  Company Number: JP-ASTRAZENECA-2008AP06539

PATIENT
  Age: 28671 Day
  Sex: Female
  Weight: 48 kg

DRUGS (19)
  1. DIPRIVAN [Suspect]
     Indication: INDUCTION OF ANAESTHESIA
     Route: 042
     Dates: start: 20080707, end: 20080707
  2. ATROPINE [Suspect]
     Indication: ANAESTHETIC PREMEDICATION
     Route: 030
     Dates: start: 20080707, end: 20080707
  3. ATROPINE [Suspect]
     Indication: MAINTENANCE OF ANAESTHESIA
     Route: 030
     Dates: start: 20080707, end: 20080707
  4. ATROPINE [Suspect]
     Route: 042
     Dates: start: 20080707, end: 20080707
  5. ATROPINE [Suspect]
     Route: 042
     Dates: start: 20080707, end: 20080707
  6. ATARAX [Suspect]
     Indication: ANAESTHETIC PREMEDICATION
     Route: 030
     Dates: start: 20080707, end: 20080707
  7. ATARAX [Suspect]
     Indication: ANALGESIA
     Route: 030
     Dates: start: 20080707, end: 20080707
  8. ULTIVA [Suspect]
     Indication: INDUCTION AND MAINTENANCE OF ANAESTHESIA
     Route: 042
     Dates: start: 20080707, end: 20080707
  9. MUSCULAX [Suspect]
     Indication: INDUCTION AND MAINTENANCE OF ANAESTHESIA
     Route: 042
     Dates: start: 20080707, end: 20080707
  10. SEVOFLURANE [Suspect]
     Indication: INDUCTION AND MAINTENANCE OF ANAESTHESIA
     Route: 055
     Dates: start: 20080707, end: 20080707
  11. ROPION [Suspect]
     Indication: MAINTENANCE OF ANAESTHESIA
     Route: 042
     Dates: start: 20080707, end: 20080707
  12. VAGOSTIGMIN [Suspect]
     Indication: MAINTENANCE OF ANAESTHESIA
     Route: 042
     Dates: start: 20080707, end: 20080707
  13. PENTAGIN [Suspect]
     Indication: ANALGESIA
     Route: 030
     Dates: start: 20080707, end: 20080707
  14. SEFMAZON [Suspect]
     Dosage: NUMBER OF SEPARATE DOSES UNKNOWN
     Route: 042
     Dates: start: 20080707, end: 20080708
  15. FAMOTIDINE [Suspect]
     Dosage: NUMBER OF SEPARATE DOSES UNKNOWN
     Route: 048
     Dates: start: 20080709, end: 20080711
  16. MUCOSTA [Suspect]
     Dosage: NUMBER OF SEPARATE DOSES UNKNOWN
     Route: 048
     Dates: start: 20080709, end: 20080711
  17. PERAPRIN [Suspect]
     Dosage: NUMBER OF SEPARATE DOSES UNKNOWN
     Route: 048
     Dates: start: 20080709, end: 20080711
  18. NORVASC [Concomitant]
     Indication: HYPERTENSION
     Route: 048
  19. DIOVAN [Concomitant]
     Indication: HYPERTENSION
     Route: 048

REACTIONS (1)
  - INAPPROPRIATE ANTIDIURETIC HORMONE SECRETION [None]
